FAERS Safety Report 4617235-5 (Version None)
Quarter: 2005Q1

REPORT INFORMATION
  Report Type: 
  Country: None (occurrence: None)
  Receive Date: 20050323
  Receipt Date: 20050316
  Transmission Date: 20050727
  Serious: Yes (Hospitalization)
  Sender: FDA-Public Use
  Company Number: PHBS2005JP03819

PATIENT
  Age: 9 Year
  Sex: Male

DRUGS (2)
  1. VALPROATE SODIUM [Suspect]
     Indication: CONVULSION
     Route: 048
  2. TEGRETOL [Suspect]
     Indication: CONVULSION
     Route: 048

REACTIONS (3)
  - PNEUMONIA [None]
  - RHABDOMYOLYSIS [None]
  - SYSTEMIC INFLAMMATORY RESPONSE SYNDROME [None]
